FAERS Safety Report 24880495 (Version 2)
Quarter: 2025Q1

REPORT INFORMATION
  Report Type: Spontaneous
  Country: US (occurrence: US)
  Receive Date: 20250123
  Receipt Date: 20250206
  Transmission Date: 20250409
  Serious: Yes (Hospitalization)
  Sender: TEVA
  Company Number: US-TEVA-VS-3287578

PATIENT

DRUGS (5)
  1. LORAZEPAM [Suspect]
     Active Substance: LORAZEPAM
     Indication: Alcohol use disorder
     Route: 065
  2. OLANZAPINE [Suspect]
     Active Substance: OLANZAPINE
     Indication: Alcohol use disorder
     Route: 065
  3. HALOPERIDOL [Suspect]
     Active Substance: HALOPERIDOL
     Indication: Alcohol use disorder
     Route: 065
  4. THIAMINE [Suspect]
     Active Substance: THIAMINE
     Indication: Alcohol use disorder
     Route: 042
  5. VALPROIC ACID [Suspect]
     Active Substance: VALPROIC ACID
     Indication: Alcohol use disorder
     Route: 065

REACTIONS (6)
  - Conjunctivochalasis [Recovered/Resolved]
  - Drug ineffective [Unknown]
  - Conjunctival oedema [Recovered/Resolved]
  - Leukocytosis [Recovered/Resolved]
  - Periorbital oedema [Recovered/Resolved]
  - Hypernatraemia [Recovered/Resolved]
